FAERS Safety Report 7632338-9 (Version None)
Quarter: 2011Q3

REPORT INFORMATION
  Report Type: 
  Country: None (occurrence: None)
  Receive Date: 20110725
  Receipt Date: 20100805
  Transmission Date: 20111222
  Serious: No
  Sender: FDA-Public Use
  Company Number: US-BRISTOL-MYERS SQUIBB COMPANY-15227176

PATIENT
  Age: 83 Year
  Sex: Female
  Weight: 57 kg

DRUGS (5)
  1. COUMADIN [Suspect]
     Indication: THROMBOSIS
     Dosage: MONDAY AND TOOK TWO 2MG COUMADIN TABLETS ON THAT DAY, TUESDAY, AND WEDNESDAY.
     Dates: start: 19900101
  2. ICAPS [Concomitant]
     Dosage: MULTIVITAMINS
  3. CALCIUM CARBONATE [Concomitant]
  4. ATENOLOL [Concomitant]
  5. VITAMIN D [Concomitant]

REACTIONS (3)
  - PRESYNCOPE [None]
  - NAUSEA [None]
  - DIZZINESS [None]
